FAERS Safety Report 8774259 (Version 3)
Quarter: 2012Q4

REPORT INFORMATION
  Report Type: 
  Country: JP (occurrence: JP)
  Receive Date: 20120907
  Receipt Date: 20121226
  Transmission Date: 20130627
  Serious: Yes (Hospitalization, Other)
  Sender: FDA-Public Use
  Company Number: JP-009507513-1208JPN010250

PATIENT
  Age: 71 Year
  Sex: Female
  Weight: 55 kg

DRUGS (17)
  1. PEGINTRON [Suspect]
     Indication: CHRONIC HEPATITIS C
     Dosage: 80 Microgram, qw
     Route: 058
     Dates: start: 20120606, end: 20120710
  2. REBETOL [Suspect]
     Indication: CHRONIC HEPATITIS C
     Dosage: 600 mg, qd
     Route: 048
     Dates: start: 20120606, end: 20120702
  3. REBETOL [Suspect]
     Dosage: 400 mg, qd
     Route: 048
     Dates: start: 20120703, end: 20120717
  4. TELAVIC [Suspect]
     Indication: HEPATITIS C
     Dosage: 1500 mg, qd
     Route: 048
     Dates: start: 20120606, end: 20120717
  5. URSO [Concomitant]
     Indication: CHRONIC HEPATITIS C
     Dosage: 300 mg, qd
     Route: 048
     Dates: end: 20120620
  6. DIOVAN [Concomitant]
     Indication: HYPERTENSION
     Dosage: 80 mg, qd
     Route: 048
     Dates: end: 20120620
  7. PREMINENT TABLETS [Concomitant]
     Indication: HYPERTENSION
     Dosage: 1 UNK, qd
     Route: 048
     Dates: start: 20120608, end: 20120620
  8. PREMINENT TABLETS [Concomitant]
     Dosage: 1 DF, qd
     Route: 048
     Dates: start: 20121016
  9. ZYLORIC [Concomitant]
     Indication: HYPERTENSION
     Dosage: 200 mg, qd
     Route: 048
     Dates: start: 20120611, end: 20120801
  10. GASTER [Concomitant]
     Indication: PROPHYLAXIS
     Dosage: 20 mg, qd
     Route: 048
     Dates: start: 20120611
  11. MUCOSTA [Concomitant]
     Indication: PROPHYLAXIS
     Dosage: 300 mg, qd
     Route: 048
     Dates: start: 20120611
  12. MARZULENE-S [Concomitant]
     Indication: PROPHYLAXIS
     Dosage: 2.01 g, qd
     Route: 048
     Dates: start: 20120611
  13. DOGMATYL [Concomitant]
     Indication: PROPHYLAXIS
     Dosage: 150 mg, qd
     Route: 048
     Dates: start: 20120611
  14. LIPITOR [Concomitant]
     Indication: HYPERTENSION
     Dosage: 10 mg, qd
     Route: 048
     Dates: start: 20120614, end: 20120620
  15. INDOMETHACIN [Concomitant]
     Dosage: 70 mg, qd
     Route: 061
     Dates: start: 20120614, end: 20120628
  16. PRIMPERAN [Concomitant]
     Dosage: 10 mg, prn
     Route: 048
     Dates: start: 20120619
  17. PRIMPERAN [Concomitant]
     Dosage: 15 mg, qd
     Route: 048
     Dates: start: 20120703

REACTIONS (3)
  - Blood urea increased [Unknown]
  - Haemoglobin decreased [Recovered/Resolved]
  - White blood cell count decreased [Not Recovered/Not Resolved]
